FAERS Safety Report 16274574 (Version 1)
Quarter: 2019Q2

REPORT INFORMATION
  Report Type: Spontaneous
  Country: US (occurrence: US)
  Receive Date: 20190506
  Receipt Date: 20190506
  Transmission Date: 20190711
  Serious: No
  Sender: FDA-Public Use
  Company Number: US-CIPLA LTD.-2018US17825

PATIENT

DRUGS (2)
  1. TOPIRAMATE. [Suspect]
     Active Substance: TOPIRAMATE
     Indication: MIGRAINE
     Dosage: 25 MG, QD (HALF A TABLET OF 25 MG BY CUTTING TABLET)
     Route: 048
     Dates: start: 20180508
  2. VITAMIN D3+GLUCOSAMIDE [Concomitant]
     Indication: VITAMIN SUPPLEMENTATION
     Dosage: 2000 IU, BID
     Route: 065
     Dates: start: 2018

REACTIONS (2)
  - No adverse event [Unknown]
  - Product administration error [Unknown]

NARRATIVE: CASE EVENT DATE: 20180508
